FAERS Safety Report 17682134 (Version 1)
Quarter: 2020Q2

REPORT INFORMATION
  Report Type: Spontaneous
  Country: US (occurrence: US)
  Receive Date: 20200418
  Receipt Date: 20200418
  Transmission Date: 20200714
  Serious: No
  Sender: FDA-Public Use
  Company Number: US-SHIRE-US202013817

PATIENT

DRUGS (1)
  1. GATTEX [Suspect]
     Active Substance: TEDUGLUTIDE\WATER
     Indication: SHORT-BOWEL SYNDROME
     Dosage: 0.33 MILLIGRAM, 1X/DAY:QD
     Route: 065

REACTIONS (3)
  - Stoma complication [Unknown]
  - Abdominal pain upper [Unknown]
  - Muscle spasms [Unknown]
